FAERS Safety Report 5519745-5 (Version None)
Quarter: 2007Q4

REPORT INFORMATION
  Report Type: 
  Country: None (occurrence: None)
  Receive Date: 20071116
  Receipt Date: 20070802
  Transmission Date: 20080405
  Serious: No
  Sender: FDA-Public Use
  Company Number: A0667873A

PATIENT
  Sex: Female

DRUGS (1)
  1. COREG CR [Suspect]
     Indication: LEFT VENTRICULAR DYSFUNCTION
     Dosage: 10MG PER DAY
     Route: 048
     Dates: start: 20070731

REACTIONS (2)
  - RASH [None]
  - RASH PRURITIC [None]
